FAERS Safety Report 18978574 (Version 1)
Quarter: 2021Q1

REPORT INFORMATION
  Report Type: Spontaneous
  Country: JP (occurrence: JP)
  Receive Date: 20210307
  Receipt Date: 20210307
  Transmission Date: 20210420
  Serious: Yes (Death, Hospitalization, Other)
  Sender: FDA-Public Use
  Company Number: JP-VALIDUS PHARMACEUTICALS LLC-JP-2021VAL000257

PATIENT
  Age: 60 Year
  Sex: Female

DRUGS (3)
  1. FUROSEMIDE. [Suspect]
     Active Substance: FUROSEMIDE
     Indication: CARDIAC FAILURE
     Dosage: UNK
     Route: 042
  2. DOBUTAMINE [Suspect]
     Active Substance: DOBUTAMINE HYDROCHLORIDE
     Indication: CARDIAC FAILURE
     Dosage: UNK
     Route: 042
  3. CARPERITIDE [Suspect]
     Active Substance: CARPERITIDE
     Indication: CARDIAC FAILURE
     Dosage: UNK
     Route: 042

REACTIONS (4)
  - Sepsis [Unknown]
  - Bacteraemia [Unknown]
  - Multiple organ dysfunction syndrome [Fatal]
  - Tricuspid valve stenosis [Unknown]
